FAERS Safety Report 8508501-1 (Version None)
Quarter: 2012Q3

REPORT INFORMATION
  Report Type: 
  Country: None (occurrence: None)
  Receive Date: 20120713
  Receipt Date: 20120706
  Transmission Date: 20120928
  Serious: Yes (Other)
  Sender: FDA-Public Use
  Company Number: US-NOVOPROD-355530

PATIENT
  Age: 39 Year
  Sex: Male
  Weight: 68.027 kg

DRUGS (2)
  1. DILANTIN [Concomitant]
     Indication: CONVULSION
     Route: 048
  2. NOVOLOG [Suspect]
     Indication: TYPE 2 DIABETES MELLITUS
     Dosage: 21 U, QD (6 U MORNING, 6 U LUNCH, AND 9 U AT NIGHT)
     Route: 058
     Dates: start: 20060101

REACTIONS (3)
  - BLOOD GLUCOSE DECREASED [None]
  - BLOOD GLUCOSE FLUCTUATION [None]
  - CONVULSION [None]
